FAERS Safety Report 25852644 (Version 1)
Quarter: 2025Q3

REPORT INFORMATION
  Report Type: Spontaneous
  Country: BR (occurrence: BR)
  Receive Date: 20250926
  Receipt Date: 20250926
  Transmission Date: 20251020
  Serious: Yes (Other)
  Sender: STRIDES
  Company Number: BR-STRIDES ARCOLAB LIMITED-2025SP012198

PATIENT
  Age: 24 Year
  Sex: Female

DRUGS (3)
  1. TENOFOVIR [Interacting]
     Active Substance: TENOFOVIR
     Indication: HIV infection
     Route: 065
  2. DOLUTEGRAVIR SODIUM\LAMIVUDINE [Interacting]
     Active Substance: DOLUTEGRAVIR SODIUM\LAMIVUDINE
     Indication: HIV infection
     Route: 065
  3. IMPLANON [Interacting]
     Active Substance: ETONOGESTREL
     Indication: Contraception

REACTIONS (4)
  - Pregnancy on contraceptive [Unknown]
  - Device failure [Unknown]
  - Drug interaction [Unknown]
  - Maternal exposure during pregnancy [Unknown]
